FAERS Safety Report 20897202 (Version 2)
Quarter: 2022Q2

REPORT INFORMATION
  Report Type: Spontaneous
  Country: US (occurrence: US)
  Receive Date: 20220531
  Receipt Date: 20220622
  Transmission Date: 20220721
  Serious: Yes (Other)
  Sender: FDA-Public Use
  Company Number: US-PFIZER INC-202200755892

PATIENT
  Age: 70 Year
  Sex: Female
  Weight: 108.86 kg

DRUGS (2)
  1. PAXLOVID [Suspect]
     Active Substance: NIRMATRELVIR\RITONAVIR
     Indication: COVID-19 treatment
     Dosage: UNK
     Dates: start: 20220522
  2. CETHROMYCIN [Concomitant]
     Active Substance: CETHROMYCIN
     Dosage: UNK

REACTIONS (6)
  - Pneumonia [Unknown]
  - Dysgeusia [Not Recovered/Not Resolved]
  - Breath odour [Not Recovered/Not Resolved]
  - Diarrhoea [Recovered/Resolved]
  - Feeling of body temperature change [Recovering/Resolving]
  - Body temperature decreased [Recovering/Resolving]

NARRATIVE: CASE EVENT DATE: 20220522
